FAERS Safety Report 5255458-5 (Version None)
Quarter: 2007Q1

REPORT INFORMATION
  Report Type: 
  Country: None (occurrence: None)
  Receive Date: 20070305
  Receipt Date: 20070222
  Transmission Date: 20070707
  Serious: Yes (Other)
  Sender: FDA-Public Use
  Company Number: 2007SE01055

PATIENT
  Age: 62 Year
  Sex: Female

DRUGS (2)
  1. PROPOFOL [Suspect]
     Indication: GENERAL ANAESTHESIA
     Route: 042
  2. FENTANEST [Concomitant]
     Indication: GENERAL ANAESTHESIA

REACTIONS (6)
  - ACIDOSIS [None]
  - ASPARTATE AMINOTRANSFERASE INCREASED [None]
  - BLOOD LACTATE DEHYDROGENASE INCREASED [None]
  - HYPOTENSION [None]
  - RENAL FAILURE [None]
  - RHABDOMYOLYSIS [None]
